FAERS Safety Report 9917558 (Version 2)
Quarter: 2014Q2

REPORT INFORMATION
  Report Type: Report from Study
  Country: US (occurrence: US)
  Receive Date: 20140221
  Receipt Date: 20140516
  Transmission Date: 20141212
  Serious: Yes (Hospitalization, Other)
  Sender: FDA-Public Use
  Company Number: US-TEVA-463451USA

PATIENT
  Age: 59 Year
  Sex: Male
  Weight: 66.8 kg

DRUGS (13)
  1. DOXORUBICIN [Suspect]
     Indication: SARCOMA METASTATIC
     Dosage: REGIMEN 1
     Dates: start: 20130130
  2. DOXORUBICIN [Suspect]
     Dosage: 75MG/M2, 138MG BOLUS CYCLE 6 REGIMEN 2
     Dates: start: 20130515
  3. ATENOLOL [Concomitant]
     Dates: start: 2003
  4. RANITIDINE [Concomitant]
     Dates: start: 2006
  5. LIDOCAINE AND PRILOCAINE [Concomitant]
     Dates: start: 20130130
  6. LORAZEPAM [Concomitant]
     Dates: start: 20130130
  7. OXYCODONE [Concomitant]
     Dates: start: 20130130
  8. PROCHLORPERAZINE MALEATE [Concomitant]
     Dates: start: 20130130
  9. PALONOSETRON [Concomitant]
     Dates: start: 20130130
  10. DEXAMETHASONE [Concomitant]
     Dates: start: 20130130
  11. FOSAPREPITANT [Concomitant]
     Dates: start: 20130130
  12. BENZONATATE [Concomitant]
     Dates: start: 20130408, end: 20130814
  13. ALBUTEROL SULFATE AND IPRATROPIUM BROMIDE [Concomitant]
     Dates: start: 20130506, end: 20131003

REACTIONS (1)
  - Pancytopenia [Recovered/Resolved]
